FAERS Safety Report 4288638-6 (Version None)
Quarter: 2004Q1

REPORT INFORMATION
  Report Type: 
  Country: None (occurrence: None)
  Receive Date: 20040209
  Receipt Date: 20040129
  Transmission Date: 20041129
  Serious: Yes (Hospitalization)
  Sender: FDA-Public Use
  Company Number: FR-BRISTOL-MYERS SQUIBB COMPANY-12491601

PATIENT
  Age: 43 Year
  Sex: Male

DRUGS (4)
  1. ZERIT [Suspect]
     Route: 048
     Dates: start: 20020815
  2. BACTRIM [Suspect]
     Route: 048
  3. EPIVIR [Suspect]
     Route: 048
     Dates: start: 20020815
  4. VIRACEPT [Suspect]
     Route: 048
     Dates: start: 20020815

REACTIONS (4)
  - CARDIAC FAILURE [None]
  - CARDIOMYOPATHY [None]
  - LEFT VENTRICULAR FAILURE [None]
  - VIRAL INFECTION [None]
